FAERS Safety Report 23838416 (Version 1)
Quarter: 2024Q2

REPORT INFORMATION
  Report Type: Spontaneous
  Country: US (occurrence: US)
  Receive Date: 20240509
  Receipt Date: 20240509
  Transmission Date: 20240716
  Serious: Yes (Other)
  Sender: FDA-Public Use
  Company Number: US-INTRA-CELLULAR THERAPIES, INC.-2024ICT00002

PATIENT
  Age: 22 Year
  Sex: Male
  Weight: 75.283 kg

DRUGS (4)
  1. CAPLYTA [Suspect]
     Active Substance: LUMATEPERONE
     Indication: Bipolar disorder
     Dosage: 42 MG, 1X/DAY
     Route: 048
     Dates: start: 202312, end: 202312
  2. CAPLYTA [Suspect]
     Active Substance: LUMATEPERONE
     Indication: Schizoaffective disorder
     Dosage: 42 MG, EVERY OTHER DAY
     Route: 048
     Dates: start: 202312
  3. CAPLYTA [Suspect]
     Active Substance: LUMATEPERONE
     Indication: Substance abuse
  4. ZYPREXA [Suspect]
     Active Substance: OLANZAPINE
     Dosage: UNK
     Dates: start: 202312, end: 202312

REACTIONS (22)
  - Dystonia [Not Recovered/Not Resolved]
  - Communication disorder [Not Recovered/Not Resolved]
  - Slow response to stimuli [Not Recovered/Not Resolved]
  - Speech sound disorder [Not Recovered/Not Resolved]
  - Decreased appetite [Not Recovered/Not Resolved]
  - Hypophagia [Not Recovered/Not Resolved]
  - Frustration tolerance decreased [Not Recovered/Not Resolved]
  - Weight decreased [Unknown]
  - Confusional state [Not Recovered/Not Resolved]
  - Abnormal behaviour [Not Recovered/Not Resolved]
  - Product dose omission issue [Recovered/Resolved]
  - Drug ineffective [Unknown]
  - Hypersomnia [Recovering/Resolving]
  - Respiration abnormal [Recovered/Resolved]
  - Heart rate increased [Recovered/Resolved]
  - Memory impairment [Not Recovered/Not Resolved]
  - Poor quality sleep [Unknown]
  - Speech disorder [Recovered/Resolved]
  - Cognitive disorder [Not Recovered/Not Resolved]
  - Dyskinesia [Not Recovered/Not Resolved]
  - Restlessness [Recovered/Resolved]
  - Somnolence [Recovering/Resolving]

NARRATIVE: CASE EVENT DATE: 20231201
